FAERS Safety Report 17127475 (Version 1)
Quarter: 2019Q4

REPORT INFORMATION
  Report Type: Spontaneous
  Country: US (occurrence: US)
  Receive Date: 20191113
  Receipt Date: 20191113
  Transmission Date: 20200122
  Serious: Yes (Other)
  Sender: FDA-Public Use
  Company Number: None

PATIENT
  Age: 47 Year
  Sex: Female
  Weight: 92.99 kg

DRUGS (9)
  1. AMOXICILLIN. [Concomitant]
     Active Substance: AMOXICILLIN
  2. HYDROCHLOROTHIAZIDE. [Concomitant]
     Active Substance: HYDROCHLOROTHIAZIDE
  3. CREST WHITENING SYSTEMS (HYDROGEN PEROXIDE) [Suspect]
     Active Substance: HYDROGEN PEROXIDE
     Indication: TOOTH DISCOLOURATION
     Route: 048
     Dates: start: 2016, end: 2016
  4. VISTARIL (HYDROXYZINE HYDROCHLORIDE) [Concomitant]
     Active Substance: HYDROXYZINE HYDROCHLORIDE
  5. SEROQUEL [Concomitant]
     Active Substance: QUETIAPINE FUMARATE
  6. SULFAMETHOXAZOLE [Concomitant]
     Active Substance: SULFAMETHOXAZOLE
  7. BENZTROPHE [Concomitant]
  8. VALACYCLOVIR (VALACICLOVIR) [Concomitant]
  9. NORCO (HYDROCODONE BITARTRATE, PARACETAMOL) [Concomitant]

REACTIONS (14)
  - Tooth disorder [None]
  - Pain [None]
  - Tooth fracture [None]
  - Gingival discomfort [None]
  - Gingival erythema [None]
  - Gingival pain [None]
  - Dental restoration failure [None]
  - Mouth haemorrhage [None]
  - Tenderness [None]
  - Oral pain [None]
  - Feeling of body temperature change [None]
  - Hyperaesthesia teeth [None]
  - Tooth loss [None]
  - Tooth erosion [None]

NARRATIVE: CASE EVENT DATE: 2016
